FAERS Safety Report 4347758-8 (Version None)
Quarter: 2004Q2

REPORT INFORMATION
  Report Type: 
  Country: None (occurrence: None)
  Receive Date: 20040427
  Receipt Date: 20040329
  Transmission Date: 20050107
  Serious: Yes (Death)
  Sender: FDA-Public Use
  Company Number: 200413683GDDC

PATIENT
  Age: 31 Year
  Sex: Male
  Weight: 70 kg

DRUGS (5)
  1. LANTUS [Suspect]
     Indication: DIABETES MELLITUS
     Dosage: DOSE UNIT: UNITS
     Route: 058
     Dates: start: 20030811
  2. HUMALOG [Suspect]
  3. OPTIPEN (INSULIN PUMP) [Suspect]
  4. WELLBUTRIN [Concomitant]
     Indication: DEPRESSION
     Route: 048
  5. VALPROIC ACID [Concomitant]
     Indication: DEPRESSION
     Route: 048

REACTIONS (3)
  - BIPOLAR DISORDER [None]
  - HYPOGLYCAEMIA [None]
  - INTENTIONAL OVERDOSE [None]
